FAERS Safety Report 16578143 (Version 2)
Quarter: 2019Q3

REPORT INFORMATION
  Report Type: Spontaneous
  Country: US (occurrence: US)
  Receive Date: 20190716
  Receipt Date: 20190731
  Transmission Date: 20191004
  Serious: No
  Sender: FDA-Public Use
  Company Number: US-PFIZER INC-2019293858

PATIENT
  Sex: Female

DRUGS (5)
  1. ESTRADIOL. [Suspect]
     Active Substance: ESTRADIOL
     Indication: ALOPECIA
  2. TESTOSTERONE. [Suspect]
     Active Substance: TESTOSTERONE
     Indication: INSOMNIA
     Dosage: UNK
  3. ESTRADIOL. [Suspect]
     Active Substance: ESTRADIOL
     Indication: INSOMNIA
     Dosage: UNK
  4. PROGESTERONE. [Suspect]
     Active Substance: PROGESTERONE
     Indication: INSOMNIA
     Dosage: UNK
  5. ESTRADIOL. [Suspect]
     Active Substance: ESTRADIOL
     Indication: HORMONE LEVEL ABNORMAL

REACTIONS (11)
  - Agitation [Unknown]
  - Muscular weakness [Unknown]
  - Asthenia [Unknown]
  - Alopecia [Unknown]
  - Condition aggravated [Unknown]
  - Depressed mood [Unknown]
  - Malaise [Not Recovered/Not Resolved]
  - Vaginal infection [Unknown]
  - Weight increased [Unknown]
  - Insomnia [Unknown]
  - Fatigue [Unknown]
